FAERS Safety Report 5888484-3 (Version None)
Quarter: 2008Q3

REPORT INFORMATION
  Report Type: 
  Country: None (occurrence: None)
  Receive Date: 20080918
  Receipt Date: 20080911
  Transmission Date: 20090109
  Serious: Yes (Other)
  Sender: FDA-Public Use
  Company Number: US-PFIZER INC-2008077002

PATIENT
  Sex: Female
  Weight: 57.6 kg

DRUGS (7)
  1. LIPITOR [Suspect]
     Indication: BLOOD CHOLESTEROL
     Dates: start: 20080822
  2. FLORINEF [Concomitant]
  3. HYDROCORTISONE [Concomitant]
  4. NORVASC [Concomitant]
  5. METOPROLOL TARTRATE [Concomitant]
  6. ALL OTHER THERAPEUTIC PRODUCTS [Concomitant]
  7. PLAVIX [Concomitant]

REACTIONS (6)
  - DIARRHOEA [None]
  - DIZZINESS [None]
  - ERUCTATION [None]
  - HYPOPHAGIA [None]
  - INSOMNIA [None]
  - STENT PLACEMENT [None]
